FAERS Safety Report 9135662 (Version 1)
Quarter: 2013Q1

REPORT INFORMATION
  Report Type: Spontaneous
  Country: US (occurrence: US)
  Receive Date: 20130304
  Receipt Date: 20130304
  Transmission Date: 20140127
  Serious: No
  Sender: FDA-Public Use
  Company Number: US-ENDO PHARMACEUTICALS INC.-ENDC20110206

PATIENT
  Sex: Female

DRUGS (1)
  1. ENDOCET 10MG/325MG [Suspect]
     Indication: PAIN
     Dosage: 120MG/3900MG
     Route: 048
     Dates: start: 20110617, end: 201107

REACTIONS (2)
  - Inappropriate schedule of drug administration [Recovered/Resolved]
  - Drug ineffective [Recovered/Resolved]
